FAERS Safety Report 5285731-6 (Version None)
Quarter: 2007Q1

REPORT INFORMATION
  Report Type: 
  Country: None (occurrence: None)
  Receive Date: 20070126
  Receipt Date: 20060502
  Transmission Date: 20070707
  Serious: No
  Sender: FDA-Public Use
  Company Number: 2006CT000789

PATIENT
  Age: 71 Year
  Sex: Female
  Weight: 55.7924 kg

DRUGS (9)
  1. VENTAVIS [Suspect]
     Indication: PULMONARY HYPERTENSION
     Dosage: 5 UG;6TO9X/DAY;INH
     Route: 055
     Dates: start: 20060404, end: 20060502
  2. ZETIA [Concomitant]
  3. ATORVASTATIN CALCIUM [Concomitant]
  4. FLUOXETINE [Concomitant]
  5. OXYGEN [Concomitant]
  6. SYNTHROID [Concomitant]
  7. ASPIRIN [Concomitant]
  8. VITAMIN CAP [Concomitant]
  9. PREDNISONE [Concomitant]

REACTIONS (3)
  - FATIGUE [None]
  - NAUSEA [None]
  - PHARYNGOLARYNGEAL PAIN [None]
